FAERS Safety Report 14656973 (Version 1)
Quarter: 2018Q1

REPORT INFORMATION
  Report Type: Spontaneous
  Country: US (occurrence: US)
  Receive Date: 20180319
  Receipt Date: 20180319
  Transmission Date: 20180509
  Serious: No
  Sender: FDA-Public Use
  Company Number: US-SA-2017SA229904

PATIENT
  Sex: Female

DRUGS (2)
  1. NASACORT ALLERGY 24HR [Suspect]
     Active Substance: TRIAMCINOLONE ACETONIDE
     Indication: MULTIPLE ALLERGIES
     Dosage: START DATE-^A WHILE, YEARS
     Route: 065
  2. ATROPINE. [Concomitant]
     Active Substance: ATROPINE
     Indication: MULTIPLE ALLERGIES

REACTIONS (1)
  - Feeling abnormal [Unknown]
